FAERS Safety Report 10436079 (Version 2)
Quarter: 2014Q1

REPORT INFORMATION
  Report Type: Spontaneous
  Country: US (occurrence: None)
  Receive Date: 20131008
  Receipt Date: 20131024
  Transmission Date: 20141002
  Serious: Yes (Death)
  Sender: FDA-Public Use
  Company Number: ALK-2013-002021

PATIENT
  Age: 31 Year
  Sex: Male

DRUGS (1)
  1. VIVITROL (VIVITROL_NDA) INJECTION, 380MG [Suspect]
     Indication: DRUG DEPENDENCE
     Route: 030

REACTIONS (1)
  - Death [None]
